FAERS Safety Report 8713520 (Version 2)
Quarter: 2012Q4

REPORT INFORMATION
  Report Type: 
  Country: US (occurrence: US)
  Receive Date: 20120808
  Receipt Date: 20120907
  Transmission Date: 20130627
  Serious: Yes (Other)
  Sender: FDA-Public Use
  Company Number: US-ROCHE-1064991

PATIENT
  Age: 31 Year
  Sex: Female
  Weight: 61.29 kg

DRUGS (12)
  1. ACCUTANE [Suspect]
     Indication: ACNE CYSTIC
     Route: 065
     Dates: start: 19870914, end: 19871216
  2. ACCUTANE [Suspect]
     Indication: ACNE
     Route: 065
     Dates: start: 19880827, end: 19880924
  3. ACCUTANE [Suspect]
     Route: 065
     Dates: start: 19881121, end: 198901
  4. ACCUTANE [Suspect]
     Route: 065
     Dates: start: 19900226, end: 199007
  5. ACCUTANE [Suspect]
     Route: 065
     Dates: start: 19910309, end: 19920331
  6. ACCUTANE [Suspect]
     Route: 065
     Dates: start: 19921007, end: 199211
  7. ACCUTANE [Suspect]
     Route: 065
     Dates: start: 20051018
  8. ACCUTANE [Suspect]
     Route: 065
     Dates: start: 200512, end: 200604
  9. ACCUTANE [Suspect]
     Route: 065
     Dates: start: 19880120, end: 19880227
  10. ACCUTANE [Suspect]
     Route: 065
     Dates: end: 19910304
  11. ACCUTANE [Suspect]
     Route: 065
     Dates: start: 20051207, end: 20060626
  12. IBUPROFEN [Concomitant]

REACTIONS (14)
  - Inflammatory bowel disease [Unknown]
  - Dry eye [Unknown]
  - Retinal detachment [Unknown]
  - Cataract [Unknown]
  - Depression [Unknown]
  - Bipolar disorder [Unknown]
  - Affective disorder [Unknown]
  - Suicidal ideation [Unknown]
  - Irritable bowel syndrome [Unknown]
  - Headache [Unknown]
  - Fungal infection [Unknown]
  - Pain in extremity [Unknown]
  - Oedema peripheral [Unknown]
  - Diverticulitis [Unknown]
